FAERS Safety Report 22172133 (Version 1)
Quarter: 2023Q2

REPORT INFORMATION
  Report Type: Report from Study
  Country: BR (occurrence: BR)
  Receive Date: 20230404
  Receipt Date: 20230404
  Transmission Date: 20230721
  Serious: Yes (Other)
  Sender: FDA-Public Use
  Company Number: BR-002147023-NVSC2023BR076257

PATIENT
  Sex: Male

DRUGS (1)
  1. EXFORGE HCT [Suspect]
     Active Substance: AMLODIPINE BESYLATE\HYDROCHLOROTHIAZIDE\VALSARTAN
     Indication: Product used for unknown indication
     Dosage: UNK (160 WITH 12 AND A HALF WITH 5MG)
     Route: 065

REACTIONS (4)
  - Urinary retention [Unknown]
  - Fluid retention [Unknown]
  - Generalised oedema [Unknown]
  - Peripheral swelling [Unknown]
